FAERS Safety Report 12383321 (Version 1)
Quarter: 2016Q2

REPORT INFORMATION
  Report Type: Report from Study
  Country: CH (occurrence: CH)
  Receive Date: 20160518
  Receipt Date: 20160518
  Transmission Date: 20160815
  Serious: Yes (Hospitalization, Disabling)
  Sender: FDA-Public Use
  Company Number: CH-ABBVIE-16K-151-1626828-00

PATIENT
  Age: 56 Year
  Sex: Male

DRUGS (2)
  1. HUMIRA [Suspect]
     Active Substance: ADALIMUMAB
     Indication: PSORIATIC ARTHROPATHY
     Route: 058
     Dates: start: 20141230, end: 20160222
  2. METHOTREXATE [Concomitant]
     Active Substance: METHOTREXATE
     Indication: PSORIATIC ARTHROPATHY
     Route: 058
     Dates: start: 20140414

REACTIONS (3)
  - Cardiomyopathy [Unknown]
  - Coronary artery disease [Unknown]
  - Chest pain [Unknown]

NARRATIVE: CASE EVENT DATE: 20160226
